FAERS Safety Report 7353878-6 (Version None)
Quarter: 2011Q1

REPORT INFORMATION
  Report Type: 
  Country: None (occurrence: None)
  Receive Date: 20110315
  Receipt Date: 20110311
  Transmission Date: 20110831
  Serious: Yes (Death, Life-Threatening, Hospitalization, Other)
  Sender: FDA-Public Use
  Company Number: US-ELI_LILLY_AND_COMPANY-US201103003812

PATIENT
  Age: 84 Year
  Sex: Female

DRUGS (3)
  1. ACTONEL [Concomitant]
  2. BONIVA [Concomitant]
  3. FORTEO [Suspect]
     Indication: OSTEOPOROSIS
     Dosage: 20 UG, DAILY (1/D)

REACTIONS (10)
  - PAIN [None]
  - STERNAL FRACTURE [None]
  - FALL [None]
  - RHEUMATOID ARTHRITIS [None]
  - ARRHYTHMIA [None]
  - DEPRESSED LEVEL OF CONSCIOUSNESS [None]
  - DISORIENTATION [None]
  - RIB FRACTURE [None]
  - RESUSCITATION [None]
  - HIP FRACTURE [None]
